FAERS Safety Report 15877833 (Version 1)
Quarter: 2019Q1

REPORT INFORMATION
  Report Type: Spontaneous
  Country: US (occurrence: US)
  Receive Date: 20190128
  Receipt Date: 20190128
  Transmission Date: 20190417
  Serious: Yes (Hospitalization, Other)
  Sender: FDA-Public Use
  Company Number: US-AMGEN-USASP2019012329

PATIENT
  Age: 29 Year
  Sex: Female

DRUGS (2)
  1. EPOGEN [Suspect]
     Active Substance: ERYTHROPOIETIN
     Indication: ANAEMIA
     Dosage: 5000 UNIT, 3 TIMES/WK
     Route: 065
  2. FERROUS SULFATE. [Concomitant]
     Active Substance: FERROUS SULFATE
     Indication: ANAEMIA
     Dosage: UNK UNK, QD

REACTIONS (3)
  - Pancreatic necrosis [Recovered/Resolved]
  - Off label use [Unknown]
  - Pancreatic abscess [Recovered/Resolved]
